FAERS Safety Report 23046994 (Version 1)
Quarter: 2023Q4

REPORT INFORMATION
  Report Type: Spontaneous
  Country: IN (occurrence: IN)
  Receive Date: 20231009
  Receipt Date: 20231009
  Transmission Date: 20240110
  Serious: Yes (Other)
  Sender: FDA-Public Use
  Company Number: IN-SANDOZ-SDZ2023IN039473

PATIENT
  Age: 18 Year
  Sex: Male

DRUGS (14)
  1. TACROLIMUS [Suspect]
     Active Substance: TACROLIMUS
     Indication: Graft versus host disease
     Dosage: UNK
     Route: 065
  2. AMPHOTERICIN B [Concomitant]
     Active Substance: AMPHOTERICIN B
     Indication: Product used for unknown indication
     Dosage: FOR 9 DAYS(LIPOSOMAL)
     Route: 065
  3. CYCLOPHOSPHAMIDE [Concomitant]
     Active Substance: CYCLOPHOSPHAMIDE
     Indication: Product used for unknown indication
     Dosage: 60 MG/KG, 2 DAYS ON D-5
     Route: 065
  4. METHOTREXATE [Concomitant]
     Active Substance: METHOTREXATE
     Dosage: 15 MG WEEKLY
     Route: 065
  5. METHOTREXATE [Concomitant]
     Active Substance: METHOTREXATE
     Indication: Graft versus host disease in skin
     Dosage: SHORT COURSE ON D-1, 3, 6, AND 11
     Route: 065
  6. POSACONAZOLE [Concomitant]
     Active Substance: POSACONAZOLE
     Dosage: 100 MG  FOR 7 D
     Route: 048
  7. POSACONAZOLE [Concomitant]
     Active Substance: POSACONAZOLE
     Indication: Acute lymphocytic leukaemia
     Dosage: 100 MG FROM DAY 4 TO DAY 7
     Route: 048
  8. VENETOCLAX [Concomitant]
     Active Substance: VENETOCLAX
     Dosage: 100 MG  FROM DAY 4 TO DAY 7
     Route: 048
  9. VENETOCLAX [Concomitant]
     Active Substance: VENETOCLAX
     Indication: Acute lymphocytic leukaemia
     Dosage: 100 MG DAY 1
     Route: 048
  10. VENETOCLAX [Concomitant]
     Active Substance: VENETOCLAX
     Dosage: 100 MG(G FOR 7 D)
     Route: 048
  11. VENETOCLAX [Concomitant]
     Active Substance: VENETOCLAX
     Dosage: 200 MG DAY 2
     Route: 048
  12. VENETOCLAX [Concomitant]
     Active Substance: VENETOCLAX
     Dosage: 300 MG DAY 3
     Route: 048
  13. VORICONAZOLE [Concomitant]
     Active Substance: VORICONAZOLE
     Indication: Product used for unknown indication
     Route: 065
  14. VORICONAZOLE [Concomitant]
     Active Substance: VORICONAZOLE
     Indication: Product used for unknown indication
     Route: 065

REACTIONS (2)
  - Seizure [Unknown]
  - Toxicity to various agents [Unknown]
